FAERS Safety Report 10569549 (Version 2)
Quarter: 2014Q4

REPORT INFORMATION
  Report Type: Spontaneous
  Country: SE (occurrence: SE)
  Receive Date: 20141106
  Receipt Date: 20141106
  Transmission Date: 20150529
  Serious: Yes (Other)
  Sender: FDA-Public Use
  Company Number: SE-009507513-1411SWE001584

PATIENT

DRUGS (1)
  1. TEMODAL [Suspect]
     Active Substance: TEMOZOLOMIDE
     Dosage: UNK
     Route: 048

REACTIONS (3)
  - Incorrect route of drug administration [Unknown]
  - Gastrostomy [Unknown]
  - Dysphagia [Unknown]

NARRATIVE: CASE EVENT DATE: 2007
